FAERS Safety Report 12138051 (Version 1)
Quarter: 2016Q1

REPORT INFORMATION
  Report Type: Spontaneous
  Country: TR (occurrence: TR)
  Receive Date: 20160302
  Receipt Date: 20160302
  Transmission Date: 20160526
  Serious: Yes (Other)
  Sender: FDA-Public Use
  Company Number: TR-MYLANLABS-2016M1008831

PATIENT

DRUGS (10)
  1. THEOPHYLLINE [Suspect]
     Active Substance: THEOPHYLLINE ANHYDROUS
     Indication: CAPILLARY LEAK SYNDROME
     Dosage: 400MG/DAY
     Route: 065
  2. TERBUTALINE [Suspect]
     Active Substance: TERBUTALINE
     Indication: CAPILLARY LEAK SYNDROME
     Dosage: 5MG/DAY
     Route: 065
  3. TERBUTALINE [Suspect]
     Active Substance: TERBUTALINE
     Indication: PRODUCT USE ISSUE
  4. ASPIRIN                            /00002701/ [Concomitant]
     Active Substance: ASPIRIN
     Indication: CAPILLARY LEAK SYNDROME
     Dosage: 300MG
     Route: 048
  5. ENOXAPARIN SODIUM. [Concomitant]
     Active Substance: ENOXAPARIN SODIUM
     Indication: CAPILLARY LEAK SYNDROME
     Route: 058
  6. METHYLPREDNISOLONE. [Concomitant]
     Active Substance: METHYLPREDNISOLONE
     Indication: CAPILLARY LEAK SYNDROME
     Dosage: 500MG/DAY
     Route: 042
  7. THIOCTIC ACID [Concomitant]
     Active Substance: THIOCTIC ACID
     Indication: CAPILLARY LEAK SYNDROME
     Dosage: DOSE AT DISCHARGE: 2X600MG
     Route: 065
  8. THEOPHYLLINE [Suspect]
     Active Substance: THEOPHYLLINE ANHYDROUS
     Indication: PRODUCT USE ISSUE
  9. TRAMADOL. [Concomitant]
     Active Substance: TRAMADOL
     Indication: CAPILLARY LEAK SYNDROME
     Dosage: DOSE AT DISCHARGE: 150MG/DAY
     Route: 065
  10. LEVOFLOXACIN. [Concomitant]
     Active Substance: LEVOFLOXACIN
     Indication: CAPILLARY LEAK SYNDROME
     Dosage: 500MG/DAY
     Route: 065

REACTIONS (2)
  - Off label use [Recovered/Resolved]
  - Capillary leak syndrome [Recovered/Resolved]
